FAERS Safety Report 5436948-9 (Version None)
Quarter: 2007Q3

REPORT INFORMATION
  Report Type: 
  Country: None (occurrence: None)
  Receive Date: 20070831
  Receipt Date: 20070827
  Transmission Date: 20080115
  Serious: Yes (Death)
  Sender: FDA-Public Use
  Company Number: AU-ASTRAZENECA-2007AP05353

PATIENT
  Age: 29354 Day
  Sex: Male

DRUGS (11)
  1. NEXIUM [Suspect]
     Route: 048
     Dates: end: 20060208
  2. METRONIDAZOLE [Suspect]
     Route: 048
     Dates: end: 20060208
  3. AMIODARONE HYDROCHLORIDE [Suspect]
     Indication: HEART RATE ABNORMAL
     Route: 048
     Dates: end: 20060208
  4. ALLOPURINOL [Suspect]
     Indication: GOUT
     Route: 048
     Dates: end: 20060208
  5. METHOTREXATE [Suspect]
     Route: 048
     Dates: end: 20060208
  6. ALUMINUM HYDROXIDE GEL [Concomitant]
  7. VITAMIN B COMPLEX CAP [Concomitant]
  8. FOLIC ACID [Concomitant]
  9. METOPROLOL TARTRATE [Concomitant]
  10. MULTIVITAMIN [Concomitant]
  11. PERINDOPRIL ERBUMINE [Concomitant]
     Indication: ESSENTIAL HYPERTENSION

REACTIONS (8)
  - ATRIAL FIBRILLATION [None]
  - BLOOD PRESSURE DECREASED [None]
  - DYSPHAGIA [None]
  - GLOSSODYNIA [None]
  - LIP SWELLING [None]
  - PANCYTOPENIA [None]
  - PHARYNGOLARYNGEAL PAIN [None]
  - WHITE BLOOD CELL COUNT DECREASED [None]
